FAERS Safety Report 7956134-8 (Version None)
Quarter: 2011Q4

REPORT INFORMATION
  Report Type: 
  Country: None (occurrence: None)
  Receive Date: 20111205
  Receipt Date: 20111126
  Transmission Date: 20120403
  Serious: Yes (Other)
  Sender: FDA-Public Use
  Company Number: US-US-EMD SERONO, INC.-7087868

PATIENT
  Sex: Female
  Weight: 104 kg

DRUGS (3)
  1. INSULIN PUMP [Concomitant]
     Indication: TYPE 1 DIABETES MELLITUS
  2. CHANTIX [Concomitant]
     Indication: SMOKING CESSATION THERAPY
  3. REBIF [Suspect]
     Indication: MULTIPLE SCLEROSIS
     Route: 058
     Dates: start: 20110302

REACTIONS (5)
  - LUNG INFECTION [None]
  - WRIST FRACTURE [None]
  - BLOOD GLUCOSE DECREASED [None]
  - BLOOD GLUCOSE INCREASED [None]
  - FALL [None]
